FAERS Safety Report 11993341 (Version 1)
Quarter: 2016Q1

REPORT INFORMATION
  Report Type: Spontaneous
  Country: US (occurrence: None)
  Receive Date: 20160202
  Receipt Date: 20160202
  Transmission Date: 20160526
  Serious: No
  Sender: FDA-Public Use
  Company Number: None

PATIENT
  Age: 59 Year
  Sex: Female

DRUGS (1)
  1. HUMIRA [Suspect]
     Active Substance: ADALIMUMAB
     Dosage: 40 MG, EVERY 2 WEEKS, SQ
     Route: 058

REACTIONS (4)
  - Skin discolouration [None]
  - Drug ineffective [None]
  - Fungal infection [None]
  - Rash [None]

NARRATIVE: CASE EVENT DATE: 20150701
